FAERS Safety Report 8421947-5 (Version None)
Quarter: 2012Q2

REPORT INFORMATION
  Report Type: 
  Country: None (occurrence: None)
  Receive Date: 20120608
  Receipt Date: 20120528
  Transmission Date: 20120825
  Serious: Yes (Other)
  Sender: FDA-Public Use
  Company Number: FR-SANOFI-AVENTIS-2012SA038792

PATIENT

DRUGS (6)
  1. ACETAMINOPHEN [Concomitant]
     Indication: PREMEDICATION
     Route: 048
  2. CYTARABINE [Suspect]
     Indication: NON-HODGKIN'S LYMPHOMA
     Dosage: ADMINISTERED ON DAY 2 OVER 1 HOUR IN 2 DOSES AT HOURS ZERO AND 12 DOSE:2 GRAM(S)/SQUARE METER
     Route: 065
  3. DEXAMETHASONE [Suspect]
     Indication: NON-HODGKIN'S LYMPHOMA
     Dosage: ADMINISTERED ON DAY 1 THROUGH 4 OF EACH CYCLE
     Route: 042
  4. RITUXIMAB [Suspect]
     Indication: NON-HODGKIN'S LYMPHOMA
     Dosage: ADMINISTERED ON DAY 1
     Route: 065
  5. DEXCHLORPHENIRAMINE MALEATE [Concomitant]
     Indication: PREMEDICATION
     Route: 042
  6. OXALIPLATIN [Suspect]
     Indication: NON-HODGKIN'S LYMPHOMA
     Dosage: ADMINISTERED ON DAY 1, OVER 3-6 HOURS BASED ON TOLERANCE
     Route: 065

REACTIONS (1)
  - PERIPHERAL MOTOR NEUROPATHY [None]
